FAERS Safety Report 25789272 (Version 1)
Quarter: 2025Q3

REPORT INFORMATION
  Report Type: Report from Study
  Country: JP (occurrence: JP)
  Receive Date: 20250911
  Receipt Date: 20250911
  Transmission Date: 20251020
  Serious: Yes (Hospitalization, Other)
  Sender: TAKEDA
  Company Number: JP-TAKEDA-2025TJP009159

PATIENT
  Sex: Male
  Weight: 45 kg

DRUGS (2)
  1. PROTEIN C [Suspect]
     Active Substance: PROTEIN C
     Indication: Protein C deficiency
  2. WARFARIN [Concomitant]
     Active Substance: WARFARIN

REACTIONS (1)
  - Pneumonia [Unknown]
